FAERS Safety Report 7902857-6 (Version None)
Quarter: 2011Q4

REPORT INFORMATION
  Report Type: 
  Country: None (occurrence: None)
  Receive Date: 20111107
  Receipt Date: 20111021
  Transmission Date: 20120403
  Serious: Yes (Other)
  Sender: FDA-Public Use
  Company Number: 1087334

PATIENT
  Age: 54 Year
  Sex: Female

DRUGS (1)
  1. OXALIPLATIN [Suspect]
     Indication: COLON CANCER METASTATIC
     Dosage: 170 MG MILLIGRAM(S), INTRAVENOUS
     Route: 042
     Dates: start: 20100923, end: 20110512

REACTIONS (4)
  - DYSPNOEA [None]
  - CHILLS [None]
  - INFUSION RELATED REACTION [None]
  - HYPERSENSITIVITY [None]
